FAERS Safety Report 17010194 (Version 7)
Quarter: 2021Q2

REPORT INFORMATION
  Report Type: Spontaneous
  Country: US (occurrence: US)
  Receive Date: 20191108
  Receipt Date: 20210623
  Transmission Date: 20210716
  Serious: Yes (Other)
  Sender: FDA-Public Use
  Company Number: US-PFIZER INC-2019210381

PATIENT
  Age: 63 Year
  Sex: Male

DRUGS (1)
  1. XELJANZ XR [Suspect]
     Active Substance: TOFACITINIB CITRATE
     Dosage: 11 MG, 1X/DAY (PO (ORALLY) QD (ONCE A DAY))
     Route: 048

REACTIONS (5)
  - Arthralgia [Unknown]
  - Neuralgia [Unknown]
  - Peripheral swelling [Unknown]
  - Pain in extremity [Unknown]
  - Joint swelling [Unknown]
